FAERS Safety Report 10855443 (Version 1)
Quarter: 2015Q1

REPORT INFORMATION
  Report Type: Spontaneous
  Country: US (occurrence: None)
  Receive Date: 20150218
  Receipt Date: 20150218
  Transmission Date: 20150721
  Serious: Yes (Disabling)
  Sender: FDA-Public Use
  Company Number: None

PATIENT
  Age: 4 Month
  Sex: Male
  Weight: 6.58 kg

DRUGS (1)
  1. BABY TEETHING [Suspect]
     Active Substance: ARABICA COFFEE BEAN\ATROPA BELLADONNA\CALCIUM PHOSPHATE\CHAMOMILE
     Indication: TEETHING
     Dosage: 2-3 TABLETS 4 X/DAY
     Route: 048
     Dates: start: 20150207, end: 20150214

REACTIONS (2)
  - Constipation [None]
  - Agitation [None]

NARRATIVE: CASE EVENT DATE: 20150215
